FAERS Safety Report 5460155-7 (Version None)
Quarter: 2007Q3

REPORT INFORMATION
  Report Type: 
  Country: None (occurrence: None)
  Receive Date: 20070919
  Receipt Date: 20070525
  Transmission Date: 20080115
  Serious: Yes (Other)
  Sender: FDA-Public Use
  Company Number: US-ASTRAZENECA-2007UW13055

PATIENT
  Age: 56 Year
  Sex: Male

DRUGS (3)
  1. SEROQUEL [Suspect]
     Indication: BIPOLAR DISORDER
     Route: 048
  2. ABILIFY [Concomitant]
     Indication: BIPOLAR DISORDER
  3. UNSPECIFIED MEDICATIONS [Concomitant]

REACTIONS (1)
  - DIABETES MELLITUS [None]
